FAERS Safety Report 18319637 (Version 1)
Quarter: 2020Q3

REPORT INFORMATION
  Report Type: Report from Study
  Country: None (occurrence: US)
  Receive Date: 20200929
  Receipt Date: 20200929
  Transmission Date: 20201103
  Serious: Yes (Other)
  Sender: FDA-Public Use
  Company Number: US-ABBVIE-20K-163-3582081-00

PATIENT
  Sex: Female

DRUGS (1)
  1. HUMIRA [Suspect]
     Active Substance: ADALIMUMAB
     Indication: PSORIASIS
     Route: 058
     Dates: start: 202008

REACTIONS (8)
  - Self-consciousness [Unknown]
  - Pain [Unknown]
  - Skin irritation [Unknown]
  - Emotional distress [Unknown]
  - Procedural pain [Unknown]
  - Helplessness [Unknown]
  - Pruritus [Unknown]
  - Ligament injury [Unknown]

NARRATIVE: CASE EVENT DATE: 2020
